FAERS Safety Report 25810718 (Version 2)
Quarter: 2025Q3

REPORT INFORMATION
  Report Type: Spontaneous
  Country: EU (occurrence: EU)
  Receive Date: 20250917
  Receipt Date: 20250919
  Transmission Date: 20251020
  Serious: Yes (Disabling, Other)
  Sender: ESPERION THERAPEUTICS
  Company Number: None

PATIENT

DRUGS (12)
  1. BEMPEDOIC ACID [Suspect]
     Active Substance: BEMPEDOIC ACID
     Indication: Hypercholesterolaemia
     Dosage: 1 DOSAGE FORM, QD
     Route: 048
     Dates: start: 20250530, end: 20250811
  2. EZETIMIBE\ROSUVASTATIN [Suspect]
     Active Substance: EZETIMIBE\ROSUVASTATIN
     Indication: Product used for unknown indication
     Route: 065
  3. OLMESARTAN [Concomitant]
     Active Substance: OLMESARTAN
     Indication: Product used for unknown indication
     Route: 065
  4. MS CONTIN [Concomitant]
     Active Substance: MORPHINE SULFATE
     Indication: Product used for unknown indication
     Route: 065
  5. ZOLPIDEM [Concomitant]
     Active Substance: ZOLPIDEM TARTRATE
     Indication: Product used for unknown indication
     Route: 065
  6. TRAZODONE [Concomitant]
     Active Substance: TRAZODONE HYDROCHLORIDE
     Indication: Product used for unknown indication
     Route: 065
  7. CHOLECALCIFEROL [Concomitant]
     Active Substance: CHOLECALCIFEROL
     Indication: Product used for unknown indication
     Route: 065
  8. DEXPANTHENOL [Concomitant]
     Active Substance: DEXPANTHENOL
     Indication: Product used for unknown indication
     Route: 065
  9. AMLODIPINE [Concomitant]
     Active Substance: AMLODIPINE BESYLATE
     Indication: Product used for unknown indication
     Route: 065
  10. LYRICA [Concomitant]
     Active Substance: PREGABALIN
     Indication: Product used for unknown indication
     Route: 065
  11. MIRABEGRON [Concomitant]
     Active Substance: MIRABEGRON
     Indication: Product used for unknown indication
     Route: 065
  12. ASPIRIN [Concomitant]
     Active Substance: ASPIRIN
     Indication: Product used for unknown indication
     Route: 065

REACTIONS (7)
  - Acute kidney injury [Recovering/Resolving]
  - Dizziness [Recovering/Resolving]
  - Asthenia [Recovering/Resolving]
  - Blood creatine increased [Recovering/Resolving]
  - Microcytic anaemia [Recovering/Resolving]
  - Blood creatine phosphokinase increased [Recovering/Resolving]
  - Blood potassium increased [Recovering/Resolving]

NARRATIVE: CASE EVENT DATE: 20250728
